FAERS Safety Report 4411173-9 (Version None)
Quarter: 2004Q3

REPORT INFORMATION
  Report Type: 
  Country: None (occurrence: None)
  Receive Date: 20040726
  Receipt Date: 20040709
  Transmission Date: 20050211
  Serious: Yes (Life-Threatening, Hospitalization)
  Sender: FDA-Public Use
  Company Number: 702001

PATIENT
  Age: 75 Year
  Sex: Female
  Weight: 71.2147 kg

DRUGS (11)
  1. AMEVIVE [Suspect]
     Indication: PSORIASIS
     Dosage: 15 MG QW IM
     Route: 030
     Dates: start: 20031110, end: 20040129
  2. LOTENSIN HCT [Concomitant]
  3. CORDRAN [Concomitant]
  4. PROTONIX [Concomitant]
  5. ULTRAVATE [Concomitant]
  6. DOVONEX [Concomitant]
  7. MULTI-VITAMINS [Concomitant]
  8. VIOXX [Concomitant]
  9. ATENOLOL [Concomitant]
  10. ASPIRIN [Concomitant]
  11. PRAVACHOL [Concomitant]

REACTIONS (8)
  - ANGINA UNSTABLE [None]
  - CORONARY ARTERY DISEASE [None]
  - CORONARY ARTERY OCCLUSION [None]
  - HYPERLIPIDAEMIA [None]
  - HYPERTENSION [None]
  - LOW DENSITY LIPOPROTEIN INCREASED [None]
  - MYOCARDIAL INFARCTION [None]
  - SENSATION OF HEAVINESS [None]
